FAERS Safety Report 5240730-5 (Version None)
Quarter: 2007Q1

REPORT INFORMATION
  Report Type: 
  Country: None (occurrence: None)
  Receive Date: 20061208
  Receipt Date: 20050425
  Transmission Date: 20070707
  Serious: Yes (Other)
  Sender: FDA-Public Use
  Company Number: 2005UW06398

PATIENT
  Age: 47 Year
  Sex: Female
  Weight: 104.32 kg

DRUGS (12)
  1. CRESTOR [Suspect]
     Indication: BLOOD CHOLESTEROL INCREASED
     Dates: start: 20041001
  2. CRESTOR [Suspect]
     Indication: BLOOD CHOLESTEROL INCREASED
     Dosage: 5 MG PO
     Route: 048
     Dates: start: 20041201, end: 20050101
  3. CRESTOR [Suspect]
     Indication: BLOOD CHOLESTEROL INCREASED
     Dosage: 10 MG PO
     Route: 048
     Dates: start: 20050101
  4. LABETALOL HCL [Concomitant]
  5. CLONIDINE [Concomitant]
  6. LISINOPRIL [Concomitant]
  7. DARVOCET-N 100 [Concomitant]
  8. NEURONTIN [Concomitant]
  9. IMITREX [Concomitant]
  10. PROZAC [Concomitant]
  11. ALPRAZOLAM [Concomitant]
  12. FLEXERIL [Concomitant]

REACTIONS (6)
  - CONSTIPATION [None]
  - NAUSEA [None]
  - OEDEMA PERIPHERAL [None]
  - PARAESTHESIA [None]
  - VOMITING [None]
  - WEIGHT INCREASED [None]
